FAERS Safety Report 10657685 (Version 2)
Quarter: 2014Q4

REPORT INFORMATION
  Report Type: Spontaneous
  Country: US (occurrence: US)
  Receive Date: 20141217
  Receipt Date: 20141217
  Transmission Date: 20150529
  Serious: No
  Sender: FDA-Public Use
  Company Number: US-GLAXOSMITHKLINE-A1055407A

PATIENT

DRUGS (4)
  1. VOTRIENT [Suspect]
     Active Substance: PAZOPANIB HYDROCHLORIDE
     Indication: RENAL CELL CARCINOMA
  2. HYDROCODONE [Suspect]
     Active Substance: HYDROCODONE
  3. FENTANYL TRANSDERMAL SYSTEM [Suspect]
     Active Substance: FENTANYL
  4. VOTRIENT [Suspect]
     Active Substance: PAZOPANIB HYDROCHLORIDE
     Indication: RENAL CANCER
     Dosage: 200  MG TABLET AT 800 MG DAILY
     Route: 048
     Dates: start: 20130816, end: 20131230

REACTIONS (8)
  - Stomatitis [Recovering/Resolving]
  - Eructation [Not Recovered/Not Resolved]
  - Drug ineffective [Unknown]
  - Decreased appetite [Recovering/Resolving]
  - Nausea [Recovering/Resolving]
  - Constipation [Recovering/Resolving]
  - Anxiety [Recovering/Resolving]
  - Hospice care [Unknown]
